FAERS Safety Report 4502912-7 (Version None)
Quarter: 2004Q4

REPORT INFORMATION
  Report Type: 
  Country: None (occurrence: None)
  Receive Date: 20041112
  Receipt Date: 20041103
  Transmission Date: 20050328
  Serious: Yes (Death, Hospitalization)
  Sender: FDA-Public Use
  Company Number: 2004UW18123

PATIENT
  Age: 41 Year
  Sex: Male
  Weight: 76.2043 kg

DRUGS (4)
  1. SEROQUEL [Suspect]
     Dosage: 25 MG BID - 250 MG TID PO
     Route: 048
     Dates: start: 20030916, end: 20040209
  2. TEGRETOL [Suspect]
     Dosage: 400 MG 2 TABS BID- 400 MG 3 TABS QPM PO
     Route: 048
     Dates: start: 19970101, end: 20040209
  3. HALADOL [Concomitant]
  4. KEPPRA [Concomitant]

REACTIONS (5)
  - AGITATION [None]
  - ANXIETY [None]
  - COMA [None]
  - CONVULSION [None]
  - PERSONALITY CHANGE [None]
